FAERS Safety Report 8954491 (Version 3)
Quarter: 2013Q4

REPORT INFORMATION
  Report Type: Spontaneous
  Country: US (occurrence: US)
  Receive Date: 20121210
  Receipt Date: 20131022
  Transmission Date: 20140711
  Serious: Yes (Other)
  Sender: FDA-Public Use
  Company Number: US-AMGEN-USASP2012070264

PATIENT
  Age: 9 Month
  Sex: Female
  Weight: 3.18 kg

DRUGS (12)
  1. ENBREL [Suspect]
     Indication: PRODUCT USED FOR UNKNOWN INDICATION
     Dosage: 25 MG, 2 TIMES/WK
     Route: 063
     Dates: start: 20080101
  2. ENBREL [Suspect]
     Indication: PRODUCT USED FOR UNKNOWN INDICATION
     Dosage: 25 MG, 2 TIMES/WK
     Route: 063
     Dates: start: 20080101
  3. FOLIC ACID [Concomitant]
     Dosage: 1 MG, QD
     Route: 063
     Dates: start: 20080101
  4. PRENATAL VITAMINS                  /02014401/ [Concomitant]
     Dosage: UNK UNK, QD
     Route: 063
     Dates: start: 20080101
  5. CALCIUM D                          /00944201/ [Concomitant]
     Dosage: 500 MG, BID
     Route: 063
     Dates: start: 20080101
  6. VALTREX [Concomitant]
     Dosage: 500 MG, QD
     Route: 063
     Dates: start: 20080101
  7. COLACE [Concomitant]
     Dosage: UNK UNK, QD
     Route: 063
     Dates: start: 20080101
  8. PREDNISONE [Concomitant]
     Indication: JUVENILE IDIOPATHIC ARTHRITIS
     Dosage: 20 MG, QD
     Route: 063
  9. PREVACID [Concomitant]
     Dosage: 30 MG, QD
     Route: 063
     Dates: start: 20080101
  10. VOLTAREN                           /00372301/ [Concomitant]
     Indication: JUVENILE IDIOPATHIC ARTHRITIS
     Dosage: 75 MG, BID
     Route: 063
     Dates: start: 20110501, end: 20120509
  11. VITAMIN D                          /00107901/ [Concomitant]
     Dosage: 1 DROP DAILY
     Route: 048
     Dates: start: 20120929
  12. SIMILAC [Concomitant]
     Dosage: UNK

REACTIONS (2)
  - Jaundice neonatal [Unknown]
  - Exposure during breast feeding [Unknown]
